FAERS Safety Report 18930994 (Version 1)
Quarter: 2021Q1

REPORT INFORMATION
  Report Type: Spontaneous
  Country: CA (occurrence: CA)
  Receive Date: 20210224
  Receipt Date: 20210224
  Transmission Date: 20210420
  Serious: Yes (Life-Threatening, Hospitalization, Other)
  Sender: FDA-Public Use
  Company Number: CA-TEVA-2021-CA-1881350

PATIENT
  Age: 3 Year
  Sex: Male
  Weight: 16 kg

DRUGS (22)
  1. VINCRISTINE SULFATE. [Suspect]
     Active Substance: VINCRISTINE SULFATE
     Indication: ATYPICAL TERATOID/RHABDOID TUMOUR OF CNS
     Route: 042
  2. MESNA. [Concomitant]
     Active Substance: MESNA
  3. POLYETHYLENE GLYCOL [Concomitant]
     Active Substance: POLYETHYLENE GLYCOLS
  4. CYTARABINE INJECTION [Concomitant]
     Active Substance: CYTARABINE
  5. FILGRASTIM [Concomitant]
     Active Substance: FILGRASTIM
  6. MAGNESIUM [Concomitant]
     Active Substance: MAGNESIUM
  7. METOCLOPRAMIDE. [Concomitant]
     Active Substance: METOCLOPRAMIDE
  8. MORPHINE [Concomitant]
     Active Substance: MORPHINE
  9. CISPLATIN INJECTION [Suspect]
     Active Substance: CISPLATIN
     Indication: ATYPICAL TERATOID/RHABDOID TUMOUR OF CNS
     Route: 042
  10. HYDROCORTISONE. [Concomitant]
     Active Substance: HYDROCORTISONE
  11. ONDANSETRON [Concomitant]
     Active Substance: ONDANSETRON
  12. SENNOSIDES. [Concomitant]
     Active Substance: SENNOSIDES
  13. VANCOMYCIN [Concomitant]
     Active Substance: VANCOMYCIN
  14. FUROSEMIDE. [Concomitant]
     Active Substance: FUROSEMIDE
  15. ETOPOSIDE. [Suspect]
     Active Substance: ETOPOSIDE
     Indication: ATYPICAL TERATOID/RHABDOID TUMOUR OF CNS
     Route: 042
  16. CALCIUM + VITAMIN D3 [Concomitant]
     Active Substance: CALCIUM CARBONATE\CHOLECALCIFEROL
  17. CICLESONIDE [Concomitant]
     Active Substance: CICLESONIDE
  18. TRIMETHOPRIMSULFAMETHOXAZOLE [Concomitant]
     Active Substance: SULFAMETHOXAZOLE\TRIMETHOPRIM
  19. CYCLOPHOSPHAMIDE. [Suspect]
     Active Substance: CYCLOPHOSPHAMIDE
     Indication: ATYPICAL TERATOID/RHABDOID TUMOUR OF CNS
     Route: 042
  20. ACETAMINOPHEN. [Concomitant]
     Active Substance: ACETAMINOPHEN
  21. DIPHENHYDRAMINE. [Concomitant]
     Active Substance: DIPHENHYDRAMINE
  22. EMEND [Concomitant]
     Active Substance: APREPITANT

REACTIONS (2)
  - Aplastic anaemia [Recovered/Resolved]
  - Febrile neutropenia [Recovered/Resolved]
